FAERS Safety Report 16594035 (Version 1)
Quarter: 2019Q3

REPORT INFORMATION
  Report Type: Report from Study
  Country: None (occurrence: CO)
  Receive Date: 20190718
  Receipt Date: 20190718
  Transmission Date: 20191004
  Serious: Yes (Hospitalization)
  Sender: FDA-Public Use
  Company Number: CO-ABBVIE-19K-036-2858657-00

PATIENT
  Age: 4 Month
  Sex: Female
  Weight: 4 kg

DRUGS (1)
  1. SYNAGIS [Suspect]
     Active Substance: PALIVIZUMAB
     Indication: BRONCHOPULMONARY DYSPLASIA
     Route: 030
     Dates: start: 20190523, end: 20190523

REACTIONS (6)
  - Bronchiolitis [Recovering/Resolving]
  - Apnoea [Recovering/Resolving]
  - Anaemia [Recovering/Resolving]
  - Cardiac failure [Recovering/Resolving]
  - Cyanosis [Recovering/Resolving]
  - Cardio-respiratory arrest [Recovering/Resolving]

NARRATIVE: CASE EVENT DATE: 20190606
